FAERS Safety Report 6969396-0 (Version None)
Quarter: 2010Q3

REPORT INFORMATION
  Report Type: 
  Country: None (occurrence: None)
  Receive Date: 20100902
  Receipt Date: 20100826
  Transmission Date: 20110219
  Serious: Yes (Death)
  Sender: FDA-Public Use
  Company Number: 2010EU004366

PATIENT
  Age: 56 Year
  Sex: Male

DRUGS (5)
  1. TACROLIMUS [Suspect]
     Indication: RENAL TRANSPLANT
  2. MYCOPHENOLATE MOFETIL [Suspect]
     Indication: RENAL TRANSPLANT
     Dosage: 2 G, UID/QD
  3. CORTICOSTEROID NOS (CORTICOSTEROID NOS) [Suspect]
     Indication: RENAL TRANSPLANT
  4. BASILIXIMAB (BASILIXIMAB) [Suspect]
     Indication: RENAL TRANSPLANT
  5. ALLOPURINOL [Concomitant]

REACTIONS (2)
  - BRONCHOPULMONARY ASPERGILLOSIS [None]
  - KIDNEY TRANSPLANT REJECTION [None]
